FAERS Safety Report 12799991 (Version 3)
Quarter: 2016Q4

REPORT INFORMATION
  Report Type: Spontaneous
  Country: DE (occurrence: DE)
  Receive Date: 20160930
  Receipt Date: 20161025
  Transmission Date: 20170207
  Serious: Yes (Disabling)
  Sender: FDA-Public Use
  Company Number: DE-AMGEN-DEUSP2016130739

PATIENT
  Age: 64 Year
  Sex: Male
  Weight: 74 kg

DRUGS (3)
  1. METOPIRON [Concomitant]
     Active Substance: METYRAPONE
     Indication: HYPERCORTICOIDISM
     Dosage: 500 MG, QD
  2. SANDOSTATIN [Concomitant]
     Active Substance: OCTREOTIDE ACETATE
     Indication: HYPERCORTICOIDISM
     Dosage: UNK UNK, QMO
     Dates: start: 20160610, end: 20160915
  3. XGEVA [Suspect]
     Active Substance: DENOSUMAB
     Indication: METASTASES TO BONE
     Dosage: 120 MG, UNK
     Route: 030
     Dates: start: 20160610

REACTIONS (4)
  - Myalgia [Not Recovered/Not Resolved]
  - Incorrect route of drug administration [Unknown]
  - Muscular weakness [Not Recovered/Not Resolved]
  - Pelvic pain [Unknown]

NARRATIVE: CASE EVENT DATE: 201609
